FAERS Safety Report 4705115-6 (Version None)
Quarter: 2005Q3

REPORT INFORMATION
  Report Type: 
  Country: None (occurrence: None)
  Receive Date: 20050701
  Receipt Date: 20050620
  Transmission Date: 20060218
  Serious: Yes (Death, Life-Threatening)
  Sender: FDA-Public Use
  Company Number: JP-JNJFOC-20050602244

PATIENT
  Age: 79 Year
  Sex: Male

DRUGS (11)
  1. ITRIZOLE [Suspect]
     Route: 049
  2. ITRIZOLE [Suspect]
     Indication: ONYCHOMYCOSIS
     Route: 049
  3. RANITIDINE HYDROCHLORIDE [Concomitant]
     Route: 049
  4. BIFIDOBACTERIUM [Concomitant]
     Indication: GASTROINTESTINAL DISORDER
     Route: 049
  5. BIFIDOBACTERIUM [Concomitant]
     Indication: CONSTIPATION
     Route: 049
  6. ALLPURINOL [Concomitant]
     Route: 049
  7. FUROSEMIDE [Concomitant]
     Route: 049
  8. FUROSEMIDE [Concomitant]
     Indication: CARDIAC FAILURE CHRONIC
     Route: 049
  9. AMLODIPINE BESILATE [Concomitant]
     Indication: HYPERTENSION
     Route: 049
  10. ACARBOSE [Concomitant]
     Indication: DIABETES MELLITUS
     Route: 049
  11. NITROGLYCERIN [Concomitant]
     Route: 061

REACTIONS (4)
  - CARDIAC FAILURE [None]
  - CARDIO-RESPIRATORY ARREST [None]
  - HYPERCAPNIA [None]
  - OEDEMA PERIPHERAL [None]
